FAERS Safety Report 6544254-4 (Version None)
Quarter: 2010Q1

REPORT INFORMATION
  Report Type: 
  Country: None (occurrence: None)
  Receive Date: 20100119
  Receipt Date: 20100119
  Transmission Date: 20100710
  Serious: Yes (Hospitalization)
  Sender: FDA-Public Use
  Company Number: None

PATIENT
  Age: 42 Year
  Sex: Male

DRUGS (6)
  1. CYTARABINE [Suspect]
     Dosage: 3600 MG, 7 DAY, INTRAVENOUS
     Route: 042
     Dates: start: 20090812, end: 20090813
  2. (MABTHERA) [Concomitant]
  3. (CISPLATIN) [Concomitant]
  4. SPORANOX [Concomitant]
  5. (LEVOXACIN) [Concomitant]
  6. (ZELITREX) [Concomitant]

REACTIONS (3)
  - DIARRHOEA [None]
  - PANCYTOPENIA [None]
  - PYREXIA [None]
